FAERS Safety Report 8170789-7 (Version None)
Quarter: 2012Q1

REPORT INFORMATION
  Report Type: 
  Country: None (occurrence: None)
  Receive Date: 20120228
  Receipt Date: 20120224
  Transmission Date: 20120608
  Serious: Yes (Other)
  Sender: FDA-Public Use
  Company Number: US-PFIZER INC-2012050024

PATIENT
  Sex: Female
  Weight: 113 kg

DRUGS (28)
  1. LEVOTHYROXINE SODIUM [Concomitant]
     Indication: HYPOTHYROIDISM
     Dosage: 250 UG, DAILY
  2. TRAMADOL [Concomitant]
     Indication: NEUROPATHY PERIPHERAL
  3. ZANAFLEX [Concomitant]
     Indication: BACK PAIN
     Dosage: 4 MG, 3X/DAY
  4. HYDROXYZINE [Concomitant]
     Indication: ANXIETY DISORDER
     Dosage: 25 MG, 4X/DAY
  5. CLONAZEPAM [Concomitant]
     Indication: ANXIETY DISORDER
     Dosage: 1 MG, 4X/DAY
  6. PROMETRIUM [Concomitant]
     Indication: HORMONE THERAPY
     Dosage: 200 MG, DAILY
     Route: 048
  7. TRAMADOL [Concomitant]
     Indication: OSTEOARTHRITIS
     Dosage: 300 MG, DAILY
     Route: 048
  8. TRAMADOL [Concomitant]
     Indication: INSOMNIA
  9. HYDROCODONE [Concomitant]
     Indication: BACK PAIN
     Dosage: 10 MG, 4X/DAY
  10. SENNA [Concomitant]
     Indication: CONSTIPATION
     Dosage: 17.2 MG, DAILY
     Route: 048
  11. GABAPENTIN [Concomitant]
     Indication: NEUROPATHY PERIPHERAL
     Dosage: 300 MG, 3X/DAY
     Dates: start: 20110101
  12. IMITREX [Concomitant]
     Indication: MIGRAINE
     Dosage: 20 MG, DAILY
  13. NAPROXEN [Concomitant]
     Indication: PAIN
     Dosage: 250 MG, 2X/DAY
  14. SERTRALINE HYDROCHLORIDE [Concomitant]
     Dosage: 200 MG, DAILY
     Route: 048
  15. NYSTATIN [Concomitant]
     Indication: FUNGAL SKIN INFECTION
     Dosage: UNK
  16. TEGRETOL [Concomitant]
     Indication: INSOMNIA
     Dosage: UNK MG, 2X/DAY (200MG ONE TABLET ORALLY DAILY IN MORNING AND THREE TABLES AT BED TIME)
  17. PERPHENAZINE [Concomitant]
     Indication: PSYCHOTIC DISORDER
     Dosage: 4 MG, 2X/DAY
  18. CETIRIZINE [Concomitant]
     Dosage: 10 MG, DAILY
  19. PROAIR HFA [Concomitant]
     Indication: CHRONIC OBSTRUCTIVE PULMONARY DISEASE
     Dosage: UNK, AS NEEDED
  20. SIMVASTATIN [Concomitant]
     Indication: BLOOD CHOLESTEROL INCREASED
     Dosage: 25 MG, DAILY
  21. METOPROLOL [Concomitant]
     Indication: HORMONE THERAPY
     Dosage: 25 MG, DAILY
  22. DICLOFENAC [Concomitant]
     Indication: OSTEOARTHRITIS
     Dosage: 75 MG, 2X/DAY
  23. ESTRADIOL [Concomitant]
     Indication: HORMONE THERAPY
     Dosage: 0.5 MG, DAILY
  24. NYSTOP [Concomitant]
     Indication: FUNGAL SKIN INFECTION
     Dosage: UNK
  25. TIZANIDINE [Concomitant]
     Indication: MUSCLE RELAXANT THERAPY
     Dosage: 4 MG, 3X/DAY
  26. FLONASE [Concomitant]
     Dosage: 50 UG, DAILY (TWO SPRAYS)
  27. LYRICA [Suspect]
     Indication: NEUROPATHY PERIPHERAL
     Dosage: 225 MG, 2X/DAY
     Route: 048
  28. TRAMADOL [Concomitant]
     Indication: PAIN

REACTIONS (2)
  - FIBROMYALGIA [None]
  - HYPERTENSION [None]
